FAERS Safety Report 7812643-3 (Version None)
Quarter: 2011Q4

REPORT INFORMATION
  Report Type: 
  Country: None (occurrence: None)
  Receive Date: 20111013
  Receipt Date: 20111010
  Transmission Date: 20120403
  Serious: Yes (Other)
  Sender: FDA-Public Use
  Company Number: US-BRISTOL-MYERS SQUIBB COMPANY-16148504

PATIENT
  Age: 61 Year
  Sex: Male

DRUGS (1)
  1. ORENCIA [Suspect]
     Dosage: RECEIVED ALL LOADING DOSES PLUS 2 ADDITIONAL TREATMENTS

REACTIONS (1)
  - PULMONARY EMBOLISM [None]
